FAERS Safety Report 21963523 (Version 2)
Quarter: 2023Q2

REPORT INFORMATION
  Report Type: Spontaneous
  Country: US (occurrence: US)
  Receive Date: 20230207
  Receipt Date: 20230522
  Transmission Date: 20230722
  Serious: Yes (Other)
  Sender: FDA-Public Use
  Company Number: US-ORGANON-O2302USA000316

PATIENT
  Sex: Female

DRUGS (1)
  1. NEXPLANON [Suspect]
     Active Substance: ETONOGESTREL
     Dosage: 1 IMPLANT IN THE ARM

REACTIONS (3)
  - Device expulsion [Recovered/Resolved]
  - Complication of device insertion [Not Recovered/Not Resolved]
  - Product quality issue [Unknown]
